FAERS Safety Report 22395255 (Version 1)
Quarter: 2023Q2

REPORT INFORMATION
  Report Type: Spontaneous
  Country: US (occurrence: None)
  Receive Date: 20230531
  Receipt Date: 20230531
  Transmission Date: 20230722
  Serious: No
  Sender: FDA-Public Use
  Company Number: None

PATIENT
  Age: 74 Year
  Sex: Female
  Weight: 115.67 kg

DRUGS (37)
  1. XGEVA [Suspect]
     Active Substance: DENOSUMAB
     Indication: Breast cancer female
     Dosage: FREQUENCY : MONTHLY;?
     Route: 058
  2. ALENDRONATE [Concomitant]
     Active Substance: ALENDRONATE SODIUM
  3. AMBIEN [Concomitant]
     Active Substance: ZOLPIDEM TARTRATE
  4. ANASTROZOLE [Concomitant]
     Active Substance: ANASTROZOLE
  5. ASPIRIN [Concomitant]
     Active Substance: ASPIRIN
  6. ATORVASTATIN [Concomitant]
     Active Substance: ATORVASTATIN
  7. BIOTIN [Concomitant]
     Active Substance: BIOTIN
  8. CALCIUM\VITAMIN D [Concomitant]
     Active Substance: CALCIUM\VITAMIN D
  9. CAPECITABINE [Concomitant]
     Active Substance: CAPECITABINE
  10. CLONAZEPAM [Concomitant]
     Active Substance: CLONAZEPAM
  11. COENZYME Q10 [Concomitant]
     Active Substance: DIETARY SUPPLEMENT\UBIDECARENONE
  12. CYCLOBENZAPRINE [Concomitant]
     Active Substance: CYCLOBENZAPRINE
  13. DULOXETINE [Concomitant]
     Active Substance: DULOXETINE
  14. FISH OIL [Concomitant]
     Active Substance: FISH OIL
  15. GARLIC OIL [Concomitant]
     Active Substance: GARLIC OIL
  16. GINGER ROOTS [Concomitant]
  17. IRON [Concomitant]
     Active Substance: IRON
  18. LETROZOLE [Concomitant]
     Active Substance: LETROZOLE
  19. LEXAPRO [Concomitant]
     Active Substance: ESCITALOPRAM OXALATE
  20. LIDODERM [Concomitant]
     Active Substance: LIDOCAINE
  21. LINZESS [Concomitant]
     Active Substance: LINACLOTIDE
  22. LISINOPRIL [Concomitant]
     Active Substance: LISINOPRIL
  23. MAGNESIUM [Concomitant]
     Active Substance: MAGNESIUM
  24. VITAMINS [Concomitant]
     Active Substance: VITAMINS
  25. MIRTAZAPINE [Concomitant]
     Active Substance: MIRTAZAPINE
  26. OXYCODONE [Concomitant]
     Active Substance: OXYCODONE
  27. POTASSIUM [Concomitant]
     Active Substance: POTASSIUM
  28. PROCHLORPERAZINE [Concomitant]
     Active Substance: PROCHLORPERAZINE
  29. SELENIUM [Concomitant]
     Active Substance: SELENIUM
  30. SENNA [Concomitant]
     Active Substance: SENNA LEAF\SENNOSIDES\SENNOSIDES A AND B
  31. DOCUSATE [Concomitant]
     Active Substance: DOCUSATE
  32. UNISOM SLEEPTABS [Concomitant]
     Active Substance: DOXYLAMINE SUCCINATE
  33. VITAMIN A [Concomitant]
     Active Substance: VITAMIN A
  34. VITAMIN C [Concomitant]
     Active Substance: ASCORBIC ACID
  35. VITAMIN E [Concomitant]
     Active Substance: .ALPHA.-TOCOPHEROL
  36. VITAMIN D3 [Concomitant]
     Active Substance: CHOLECALCIFEROL
  37. ZINC [Concomitant]
     Active Substance: ZINC

REACTIONS (2)
  - Osteonecrosis of jaw [None]
  - Therapy interrupted [None]
